FAERS Safety Report 17401510 (Version 2)
Quarter: 2020Q1

REPORT INFORMATION
  Report Type: Spontaneous
  Country: PL (occurrence: PL)
  Receive Date: 20200211
  Receipt Date: 20200227
  Transmission Date: 20200409
  Serious: Yes (Death)
  Sender: FDA-Public Use
  Company Number: PL-BIOVITRUM-2020PL0688

PATIENT
  Age: 63 Year
  Sex: Male
  Weight: 84 kg

DRUGS (3)
  1. PREDNISONE. [Concomitant]
     Active Substance: PREDNISONE
     Indication: AUTOINFLAMMATORY DISEASE
     Route: 048
     Dates: start: 2010, end: 20180923
  2. KINERET [Suspect]
     Active Substance: ANAKINRA
     Indication: AUTOINFLAMMATORY DISEASE
     Route: 058
     Dates: start: 20180523, end: 20180923
  3. AMLODYPINE [Concomitant]
     Indication: HYPERTENSION
     Route: 048
     Dates: start: 2008, end: 20180923

REACTIONS (2)
  - Myocardial infarction [Fatal]
  - Off label use [Unknown]

NARRATIVE: CASE EVENT DATE: 20180923
